FAERS Safety Report 7363269-X (Version None)
Quarter: 2011Q1

REPORT INFORMATION
  Report Type: 
  Country: None (occurrence: None)
  Receive Date: 20110321
  Receipt Date: 20110308
  Transmission Date: 20110831
  Serious: Yes (Hospitalization)
  Sender: FDA-Public Use
  Company Number: US-JNJFOC-20071102842

PATIENT
  Sex: Female
  Weight: 76 kg

DRUGS (4)
  1. INFLIXIMAB [Suspect]
     Indication: COLITIS ULCERATIVE
     Route: 042
  2. ZANTAC [Concomitant]
  3. INFLIXIMAB [Suspect]
     Dosage: TOTAL 6 DOSES
     Route: 042
  4. MESALAMINE [Concomitant]

REACTIONS (1)
  - COLITIS [None]
